FAERS Safety Report 7626177-2 (Version None)
Quarter: 2011Q3

REPORT INFORMATION
  Report Type: 
  Country: None (occurrence: None)
  Receive Date: 20110721
  Receipt Date: 20110708
  Transmission Date: 20111222
  Serious: Yes (Hospitalization, Other)
  Sender: FDA-Public Use
  Company Number: PHHY2011FR61290

PATIENT
  Age: 52 Year
  Sex: Female

DRUGS (3)
  1. RASILEZ [Suspect]
     Indication: HYPERTENSION
     Dosage: 300 MG, QD
     Route: 048
  2. INDAPAMIDE [Concomitant]
     Indication: HYPERTENSION
     Dosage: UNK UKN, UNK
  3. RASILEZ [Suspect]
     Dosage: 150 MG, QD
     Route: 048

REACTIONS (1)
  - PANCREATITIS ACUTE [None]
